FAERS Safety Report 15350434 (Version 1)
Quarter: 2018Q3

REPORT INFORMATION
  Report Type: Spontaneous
  Country: GB (occurrence: GB)
  Receive Date: 20180905
  Receipt Date: 20180905
  Transmission Date: 20181010
  Serious: Yes (Death)
  Sender: FDA-Public Use
  Company Number: GB-TEVA-2018-GB-951356

PATIENT
  Age: 59 Year
  Sex: Male

DRUGS (22)
  1. ACICLOVIR [Concomitant]
     Active Substance: ACYCLOVIR
  2. HYOSCINE BUTYLBROMIDE [Concomitant]
     Active Substance: BUTYLSCOPOLAMINE
  3. CORSODYL [Concomitant]
     Active Substance: CHLORHEXIDINE GLUCONATE
  4. CIPROFLOXACIN. [Concomitant]
     Active Substance: CIPROFLOXACIN
  5. AMOXICILLIN. [Concomitant]
     Active Substance: AMOXICILLIN
  6. MIRTAZAPINE. [Concomitant]
     Active Substance: MIRTAZAPINE
  7. HUMULIN L [Concomitant]
     Active Substance: INSULIN HUMAN
  8. LORAZEPAM. [Concomitant]
     Active Substance: LORAZEPAM
  9. MORPHINE SULFATE. [Concomitant]
     Active Substance: MORPHINE SULFATE
  10. ENOXAPARIN SODIUM. [Concomitant]
     Active Substance: ENOXAPARIN SODIUM
     Indication: THROMBOSIS PROPHYLAXIS
     Dosage: 40 MILLIGRAM DAILY;
     Route: 058
     Dates: start: 201804
  11. CLARITHROMYCIN. [Concomitant]
     Active Substance: CLARITHROMYCIN
  12. RANITIDINE. [Concomitant]
     Active Substance: RANITIDINE
     Indication: PROPHYLAXIS
     Dosage: 300 MILLIGRAM DAILY;
  13. TRIMETHOPRIM. [Concomitant]
     Active Substance: TRIMETHOPRIM
  14. DEXAMETHASONE. [Suspect]
     Active Substance: DEXAMETHASONE
     Indication: ANAPLASTIC ASTROCYTOMA
     Dosage: 3 MILLIGRAM DAILY; VARIABLE DOSES THROUGHOUT COURSE OF TREATMENT, AT TIME OF DEATH 3MG ONCE DAILY.
     Route: 048
     Dates: start: 20170912, end: 20180801
  15. MIDAZOLAM [Concomitant]
     Active Substance: MIDAZOLAM HYDROCHLORIDE
  16. LEVETIRACETAM. [Concomitant]
     Active Substance: LEVETIRACETAM
  17. CO?AMOXICLAV [Concomitant]
     Active Substance: AMOXICILLIN\CLAVULANATE POTASSIUM
  18. MICONAZOLE. [Concomitant]
     Active Substance: MICONAZOLE
  19. NOVORAPID [Concomitant]
     Active Substance: INSULIN ASPART
  20. PARACETAMOL [Concomitant]
     Active Substance: ACETAMINOPHEN
  21. LEVOMEPROMAZINE [Concomitant]
     Active Substance: LEVOMEPROMAZINE
  22. LEVOFLOXACIN. [Concomitant]
     Active Substance: LEVOFLOXACIN

REACTIONS (2)
  - Haematemesis [Fatal]
  - Upper gastrointestinal haemorrhage [Fatal]

NARRATIVE: CASE EVENT DATE: 20180731
